FAERS Safety Report 15389561 (Version 2)
Quarter: 2018Q3

REPORT INFORMATION
  Report Type: Spontaneous
  Country: US (occurrence: US)
  Receive Date: 20180917
  Receipt Date: 20180917
  Transmission Date: 20181010
  Serious: No
  Sender: FDA-Public Use
  Company Number: US-LUPIN PHARMACEUTICALS INC.-2018-04025

PATIENT
  Sex: Male

DRUGS (1)
  1. CEFUROXIME AXETIL TABLETS USP, 500 MG [Suspect]
     Active Substance: CEFUROXIME AXETIL
     Indication: PRODUCT USED FOR UNKNOWN INDICATION
     Dosage: 1 DF, UNK
     Route: 048

REACTIONS (3)
  - Product solubility abnormal [Unknown]
  - Product taste abnormal [Unknown]
  - Product odour abnormal [Unknown]
